FAERS Safety Report 24592060 (Version 1)
Quarter: 2024Q4

REPORT INFORMATION
  Report Type: Spontaneous
  Country: JP (occurrence: JP)
  Receive Date: 20241108
  Receipt Date: 20241108
  Transmission Date: 20250115
  Serious: Yes (Hospitalization, Other)
  Sender: HELSINN HEALTHCARE
  Company Number: JP-HBP-2024JP031388

PATIENT
  Age: 74 Year
  Sex: Female
  Weight: 55 kg

DRUGS (8)
  1. ALOXI [Suspect]
     Active Substance: PALONOSETRON HYDROCHLORIDE
     Indication: Pancreatic carcinoma metastatic
     Dosage: 0.75 MILLIGRAM, 1/WEEK
     Route: 041
     Dates: start: 20150909, end: 20151028
  2. ABRAXANE [Suspect]
     Active Substance: PACLITAXEL
     Indication: Pancreatic carcinoma metastatic
     Dosage: 190 MILLIGRAM, 1/WEEK
     Route: 041
     Dates: start: 20150909
  3. ABRAXANE [Suspect]
     Active Substance: PACLITAXEL
     Dosage: 140 MILLIGRAM, 1/WEEK
     Route: 041
     Dates: end: 20151028
  4. GEMZAR [Suspect]
     Active Substance: GEMCITABINE HYDROCHLORIDE
     Indication: Pancreatic carcinoma metastatic
     Dosage: 1530 MILLIGRAM, 1/WEEK
     Route: 041
     Dates: start: 20150909
  5. GEMZAR [Suspect]
     Active Substance: GEMCITABINE HYDROCHLORIDE
     Dosage: 1180 MILLIGRAM, 1/WEEK
     Route: 041
     Dates: end: 20151104
  6. DECADRON [Concomitant]
     Active Substance: DEXAMETHASONE
     Indication: Pancreatic carcinoma metastatic
     Dosage: 6.6 MILLIGRAM, 1/WEEK
     Route: 041
     Dates: start: 20150909, end: 20151104
  7. VONOPRAZAN [Concomitant]
     Active Substance: VONOPRAZAN
     Indication: Product used for unknown indication
     Dosage: 10 MILLIGRAM, QD
     Route: 048
  8. CALONAL [Concomitant]
     Active Substance: ACETAMINOPHEN
     Indication: Cancer pain
     Dosage: 400 MILLIGRAM, Q8H
     Route: 048
     Dates: start: 20150909

REACTIONS (11)
  - Hypophagia [Recovered/Resolved]
  - Mobility decreased [Recovered/Resolved]
  - Febrile neutropenia [Unknown]
  - Neuropathy peripheral [Unknown]
  - Pneumonitis [Recovered/Resolved]
  - Nausea [Unknown]
  - Oedema peripheral [Unknown]
  - Malaise [Unknown]
  - Off label use [Unknown]
  - Constipation [Unknown]
  - Decreased appetite [Unknown]

NARRATIVE: CASE EVENT DATE: 20150901
